FAERS Safety Report 4618104-7 (Version None)
Quarter: 2005Q1

REPORT INFORMATION
  Report Type: 
  Country: None (occurrence: None)
  Receive Date: 20050322
  Receipt Date: 20050311
  Transmission Date: 20050727
  Serious: Yes (Other)
  Sender: FDA-Public Use
  Company Number: KII-2005-0015479

PATIENT
  Age: 49 Year
  Sex: Male

DRUGS (2)
  1. MORPHINE SULFATE [Suspect]
     Indication: PAIN
     Dosage: SEE TEXT, ORAL
     Route: 048
  2. COCAINE (COCAINE) [Suspect]

REACTIONS (4)
  - CONSCIOUSNESS FLUCTUATING [None]
  - DRUG SCREEN POSITIVE [None]
  - POLYSUBSTANCE ABUSE [None]
  - RASH [None]
